FAERS Safety Report 5958668-4 (Version None)
Quarter: 2008Q4

REPORT INFORMATION
  Report Type: 
  Country: None (occurrence: None)
  Receive Date: 20081119
  Receipt Date: 20081113
  Transmission Date: 20090506
  Serious: Yes (Hospitalization)
  Sender: FDA-Public Use
  Company Number: AT-AMGEN-UK308903

PATIENT
  Sex: Male

DRUGS (2)
  1. PANITUMUMAB [Suspect]
     Indication: COLORECTAL CANCER
     Route: 042
     Dates: start: 20080613
  2. FORTUM [Concomitant]
     Route: 042
     Dates: start: 20080913, end: 20080926

REACTIONS (1)
  - PYREXIA [None]
